FAERS Safety Report 13006182 (Version 1)
Quarter: 2016Q4

REPORT INFORMATION
  Report Type: Spontaneous
  Country: DE (occurrence: DE)
  Receive Date: 20161207
  Receipt Date: 20161207
  Transmission Date: 20170207
  Serious: Yes (Other)
  Sender: FDA-Public Use
  Company Number: DE-UCBSA-2016045963

PATIENT
  Sex: Female

DRUGS (2)
  1. KEPPRA [Suspect]
     Active Substance: LEVETIRACETAM
     Indication: PRODUCT USED FOR UNKNOWN INDICATION
     Dosage: 2X/DAY (BID), 1500MG -0-1000MG
  2. LAMOTRIGINE. [Concomitant]
     Active Substance: LAMOTRIGINE
     Indication: PRODUCT USED FOR UNKNOWN INDICATION
     Dosage: 25 MG/ DAY

REACTIONS (6)
  - Disturbance in attention [Unknown]
  - Panic attack [Unknown]
  - Distractibility [Unknown]
  - Fear [Unknown]
  - Personality change [Unknown]
  - Generalised tonic-clonic seizure [Unknown]
